FAERS Safety Report 21405070 (Version 1)
Quarter: 2022Q4

REPORT INFORMATION
  Report Type: Spontaneous
  Country: IT (occurrence: IT)
  Receive Date: 20221004
  Receipt Date: 20221004
  Transmission Date: 20230113
  Serious: Yes (Other)
  Sender: FDA-Public Use
  Company Number: None

PATIENT
  Age: 68 Year
  Sex: Male

DRUGS (1)
  1. KEYTRUDA [Suspect]
     Active Substance: PEMBROLIZUMAB
     Indication: Lung neoplasm malignant
     Dosage: 200 MILLIGRAM
     Route: 042
     Dates: start: 20220110, end: 20220525

REACTIONS (3)
  - Erythema [Recovering/Resolving]
  - Psoriasis [Recovering/Resolving]
  - Squamoproliferative lesion [Recovering/Resolving]

NARRATIVE: CASE EVENT DATE: 20220615
